FAERS Safety Report 12385938 (Version 2)
Quarter: 2016Q2

REPORT INFORMATION
  Report Type: Report from Study
  Country: US (occurrence: US)
  Receive Date: 20160519
  Receipt Date: 20160530
  Transmission Date: 20160815
  Serious: No
  Sender: FDA-Public Use
  Company Number: US-AMGEN-USASL2016057102

PATIENT
  Age: 63 Year
  Sex: Male

DRUGS (1)
  1. ENBREL [Suspect]
     Active Substance: ETANERCEPT
     Indication: RHEUMATOID ARTHRITIS
     Dosage: UNK UNK, QWK
     Route: 065
     Dates: start: 20160422

REACTIONS (6)
  - Fatigue [Unknown]
  - Insomnia [Unknown]
  - Night sweats [Unknown]
  - Chest discomfort [Unknown]
  - Depression [Unknown]
  - Headache [Unknown]

NARRATIVE: CASE EVENT DATE: 2016
